FAERS Safety Report 5135763-3 (Version None)
Quarter: 2006Q4

REPORT INFORMATION
  Report Type: 
  Country: None (occurrence: None)
  Receive Date: 20061024
  Receipt Date: 20061024
  Transmission Date: 20070319
  Serious: Yes (Hospitalization)
  Sender: FDA-Public Use
  Company Number: None

PATIENT
  Sex: Male

DRUGS (17)
  1. TERAZOSIN HCL [Suspect]
     Indication: URINARY RETENTION
     Dosage: 5 MG    HS     PO
     Route: 048
     Dates: start: 20060513, end: 20060913
  2. ALBUTEROL [Concomitant]
  3. ALLOPURINOL [Concomitant]
  4. ASPIRIN [Concomitant]
  5. CLOPIDOGREL [Concomitant]
  6. FERROUS SULFATE TAB [Concomitant]
  7. FLUOXETINE [Concomitant]
  8. FUROSEMIDE [Concomitant]
  9. GLYBURIDE [Concomitant]
  10. IPRATROPIUM BROMIDE [Concomitant]
  11. ISOSORBIDE MONONITRATE [Concomitant]
  12. LISINOPRIL [Concomitant]
  13. MAGNESIUM OXIDE [Concomitant]
  14. OMEPRAZOLE [Concomitant]
  15. POTASSIUM CHLORIDE [Concomitant]
  16. SPIRONOLACTONE [Concomitant]
  17. IMPROVE IT TRIAL MEDS [Concomitant]

REACTIONS (2)
  - HYPOTENSION [None]
  - MYOCARDIAL INFARCTION [None]
